FAERS Safety Report 9820066 (Version 1)
Quarter: 2014Q1

REPORT INFORMATION
  Report Type: Spontaneous
  Country: US (occurrence: None)
  Receive Date: 20140113
  Receipt Date: 20140113
  Transmission Date: 20141002
  Serious: Yes (Other)
  Sender: FDA-Public Use
  Company Number: None

PATIENT
  Age: 39 Year
  Sex: Male
  Weight: 94.8 kg

DRUGS (1)
  1. BUPREN-NALOX [Suspect]
     Indication: DRUG DEPENDENCE
     Dosage: TAKEN BY MOUTH
     Dates: start: 20131231, end: 20140110

REACTIONS (3)
  - Treatment failure [None]
  - Product substitution issue [None]
  - Incorrect dose administered [None]
